FAERS Safety Report 21961848 (Version 1)
Quarter: 2023Q1

REPORT INFORMATION
  Report Type: Report from Study
  Country: CZ (occurrence: CZ)
  Receive Date: 20230207
  Receipt Date: 20230207
  Transmission Date: 20230418
  Serious: Yes (Death)
  Sender: FDA-Public Use
  Company Number: CZ-ABBVIE-4295532

PATIENT
  Age: 62 Year
  Sex: Female

DRUGS (8)
  1. CARBIDOPA\LEVODOPA [Suspect]
     Active Substance: CARBIDOPA\LEVODOPA
     Indication: Parkinson^s disease
     Dosage: MORNING DOSE 6.2 ML, CONTINUES DOSE 2.5 ML
     Route: 050
     Dates: start: 20040701, end: 20230118
  2. CARBIDOPA\LEVODOPA [Suspect]
     Active Substance: CARBIDOPA\LEVODOPA
  3. CALCIUM PANTOTHENATE\NIACINAMIDE\PYRIDOXINE HYDROCHLORIDE\RIBOFLAVIN\T [Concomitant]
     Active Substance: CALCIUM PANTOTHENATE\NIACINAMIDE\PYRIDOXINE HYDROCHLORIDE\RIBOFLAVIN\THIAMINE HYDROCHLORIDE
     Indication: Pain prophylaxis
     Dosage: FREQUENCY TEXT: 1-0-0
     Route: 048
     Dates: start: 20210712, end: 20230118
  4. LYRICA [Concomitant]
     Active Substance: PREGABALIN
     Indication: Pain prophylaxis
     Dosage: FREQUENCY TEXT: 1-0-0
     Dates: start: 20210712, end: 20230118
  5. MELPERONE HYDROCHLORIDE [Concomitant]
     Active Substance: MELPERONE HYDROCHLORIDE
     Indication: Product used for unknown indication
     Dosage: FREQUENCY TEXT: 1-0-0
     Route: 048
     Dates: start: 20220901, end: 20230118
  6. QUETIAPINE FUMARATE [Concomitant]
     Active Substance: QUETIAPINE FUMARATE
     Indication: Product used for unknown indication
     Dosage: FREQUENCY TEXT: 1-0-0
     Route: 048
     Dates: start: 20210712, end: 20230118
  7. LANDEX [Concomitant]
     Indication: Product used for unknown indication
     Dosage: FREQUENCY TEXT: 1-0-0
     Route: 048
     Dates: start: 20210712, end: 20230118
  8. ESCIRDEC [Concomitant]
     Indication: Product used for unknown indication
     Dosage: FREQUENCY TEXT: 1-0-0
     Route: 048
     Dates: start: 20210712, end: 20230118

REACTIONS (1)
  - Death [Fatal]

NARRATIVE: CASE EVENT DATE: 20230118
